FAERS Safety Report 5814322-0 (Version None)
Quarter: 2008Q3

REPORT INFORMATION
  Report Type: 
  Country: None (occurrence: None)
  Receive Date: 20080715
  Receipt Date: 20080701
  Transmission Date: 20090109
  Serious: Yes (Death, Hospitalization)
  Sender: FDA-Public Use
  Company Number: AZAUS200800167

PATIENT
  Age: 60 Year
  Sex: Female

DRUGS (15)
  1. VIDAZA [Suspect]
     Indication: ACUTE MYELOID LEUKAEMIA
     Dosage: 44 MG, DAILY X 5 DAYS), SUBCUTANEOUS
     Route: 058
     Dates: start: 20080522, end: 20080526
  2. MYLOTARG [Suspect]
     Indication: ACUTE MYELOID LEUKAEMIA
     Dosage: 2.8 MG, DAILY X 1
     Dates: start: 20080329, end: 20080329
  3. FLUDARABINE PHOSPHATE [Suspect]
     Indication: ACUTE MYELOID LEUKAEMIA
     Dosage: 42MG, DAILY X 4 DAYS
     Dates: start: 20080405, end: 20080408
  4. MELPHALAN (MELPHALAN) [Suspect]
     Indication: ACUTE MYELOID LEUKAEMIA
     Dosage: 210 MG, DAILY X 1 DAY
     Dates: start: 20080408, end: 20080408
  5. AMPHOTERICIN B LIPOSOMAL          (AMPHOTERICIN B, LIPOSOME) [Concomitant]
  6. ANIDULAFUNGIN (ANIDULAFUNGIN) [Concomitant]
  7. AZITHROMYCIN [Concomitant]
  8. CEFEPIME [Concomitant]
  9. FOSCARNET [Concomitant]
  10. GANCICLOVIR [Concomitant]
  11. TIGECYCLINE (TIGECYCLINE) [Concomitant]
  12. METHYLPREDNISOLONE [Concomitant]
  13. AMICAR [Concomitant]
  14. PHYTONADIONE [Concomitant]
  15. DDAVP [Concomitant]

REACTIONS (16)
  - ACUTE RESPIRATORY DISTRESS SYNDROME [None]
  - ASCITES [None]
  - BRONCHOGRAM ABNORMAL [None]
  - DYSPNOEA EXERTIONAL [None]
  - GENERAL PHYSICAL HEALTH DETERIORATION [None]
  - MENTAL STATUS CHANGES [None]
  - PLATELET COUNT DECREASED [None]
  - PNEUMONIA [None]
  - POSTNASAL DRIP [None]
  - PULMONARY ALVEOLAR HAEMORRHAGE [None]
  - PULMONARY OEDEMA [None]
  - RESPIRATORY FAILURE [None]
  - RESPIRATORY MONILIASIS [None]
  - TREATMENT FAILURE [None]
  - VENOOCCLUSIVE LIVER DISEASE [None]
  - WEIGHT INCREASED [None]
